FAERS Safety Report 23765988 (Version 2)
Quarter: 2024Q2

REPORT INFORMATION
  Report Type: Spontaneous
  Country: JP (occurrence: JP)
  Receive Date: 20240421
  Receipt Date: 20240424
  Transmission Date: 20240716
  Serious: Yes (Hospitalization, Other)
  Sender: FDA-Public Use
  Company Number: JP-GLAXOSMITHKLINE-JP2024JPN048236

PATIENT

DRUGS (7)
  1. VALTREX [Suspect]
     Active Substance: VALACYCLOVIR HYDROCHLORIDE
     Indication: Herpes zoster
     Dosage: 1000 MG, TID
     Route: 048
     Dates: start: 20240223, end: 20240226
  2. ZOVIRAX [Suspect]
     Active Substance: ACYCLOVIR
     Indication: Herpes zoster meningitis
     Dosage: 350 MG (5 MG/KG), 1D
     Dates: start: 20240226, end: 20240227
  3. LEVOTHYROXINE SODIUM [Concomitant]
     Active Substance: LEVOTHYROXINE SODIUM
     Dosage: 50 ?G, 1D, AFTER BREAKFAST
  4. NIFEDIPINE [Concomitant]
     Active Substance: NIFEDIPINE
     Dosage: 20 MG, 1D, AFTER BREAKFAST
  5. CALTAN [Concomitant]
     Active Substance: CALCIUM CARBONATE
     Dosage: 1 DF, TID, AFTER EACH MEAL
  6. FERRIC CITRATE ANHYDROUS [Concomitant]
     Active Substance: FERRIC CITRATE ANHYDROUS
     Dosage: 250 MG, TID, AFTER EACH MEAL
  7. DUPHASTON [Concomitant]
     Active Substance: DYDROGESTERONE
     Dosage: 5 MG, 1D, AFTER BREAKFAST

REACTIONS (9)
  - Altered state of consciousness [Recovered/Resolved]
  - Herpes zoster meningitis [Unknown]
  - Toxic encephalopathy [Unknown]
  - Balance disorder [Unknown]
  - Speech disorder [Unknown]
  - Dysarthria [Unknown]
  - Tremor [Unknown]
  - Confusional state [Unknown]
  - Prescribed overdose [Unknown]

NARRATIVE: CASE EVENT DATE: 20240224
